FAERS Safety Report 7221032-4 (Version None)
Quarter: 2011Q1

REPORT INFORMATION
  Report Type: 
  Country: None (occurrence: None)
  Receive Date: 20110112
  Receipt Date: 20110107
  Transmission Date: 20110831
  Serious: Yes (Other)
  Sender: FDA-Public Use
  Company Number: US-PFIZER INC-2011004963

PATIENT
  Sex: Male
  Weight: 81.633 kg

DRUGS (6)
  1. VIAGRA [Suspect]
     Indication: PROSTATECTOMY
     Dosage: UNK
     Route: 048
  2. ARGININE [Suspect]
     Dosage: 2000 MG, 1X/DAY
  3. ATACAND HCT [Suspect]
     Indication: HYPERTENSION
     Dosage: [CANDESARTAN CILEXETIL 32 MG]/[HYDROCHLOROTHIAZIDE 12.5 MG], 1X/DAY
     Route: 048
  4. OMEPRAZOLE [Concomitant]
     Indication: OESOPHAGEAL IRRITATION
     Dosage: UNK
  5. TOPIRAMATE [Concomitant]
     Indication: TREMOR
     Dosage: 25 MG, 2X/DAY
  6. ACETYLSALICYLIC ACID [Suspect]
     Dosage: 30 MG, 1X/DAY
     Route: 048

REACTIONS (4)
  - SYNCOPE [None]
  - INJURY [None]
  - ARRHYTHMIA [None]
  - DRUG INEFFECTIVE [None]
